FAERS Safety Report 12652579 (Version 2)
Quarter: 2016Q4

REPORT INFORMATION
  Report Type: Spontaneous
  Country: US (occurrence: US)
  Receive Date: 20160815
  Receipt Date: 20161012
  Transmission Date: 20170207
  Serious: No
  Sender: FDA-Public Use
  Company Number: US-PFIZER INC-2016385374

PATIENT
  Age: 74 Year
  Sex: Male
  Weight: 109 kg

DRUGS (2)
  1. ADVIL [Suspect]
     Active Substance: IBUPROFEN
     Indication: SWELLING
     Dosage: 400 MG, DAILY (200MG, 2 TABLETS A DAY)
     Dates: start: 20160808, end: 2016
  2. COUMADIN [Concomitant]
     Active Substance: WARFARIN SODIUM
     Indication: PULMONARY THROMBOSIS
     Dosage: 5MG OR 7,5MG, DEPENDING ON DAY
     Dates: start: 2000

REACTIONS (2)
  - Product use issue [Recovered/Resolved]
  - Blood pressure fluctuation [Recovered/Resolved]

NARRATIVE: CASE EVENT DATE: 201608
